FAERS Safety Report 7129382-7 (Version None)
Quarter: 2010Q4

REPORT INFORMATION
  Report Type: 
  Country: None (occurrence: None)
  Receive Date: 20101130
  Receipt Date: 20101116
  Transmission Date: 20110411
  Serious: Yes (Other)
  Sender: FDA-Public Use
  Company Number: US-PFIZER INC-2010152387

PATIENT
  Sex: Male
  Weight: 117.9 kg

DRUGS (1)
  1. DILANTIN [Suspect]
     Indication: GRAND MAL CONVULSION
     Dosage: 300MG IN MORNING, 200MG IN EVENING
     Dates: start: 20000101

REACTIONS (6)
  - BALANCE DISORDER [None]
  - CONVULSION [None]
  - DIZZINESS [None]
  - DRUG LEVEL INCREASED [None]
  - FATIGUE [None]
  - TINNITUS [None]
